FAERS Safety Report 16937521 (Version 6)
Quarter: 2020Q2

REPORT INFORMATION
  Report Type: Report from Study
  Country: None (occurrence: CO)
  Receive Date: 20191019
  Receipt Date: 20200429
  Transmission Date: 20200713
  Serious: Yes (Hospitalization)
  Sender: FDA-Public Use
  Company Number: CO-ABBVIE-19K-036-2969263-00

PATIENT
  Age: 73 Year
  Sex: Female
  Weight: 49 kg

DRUGS (6)
  1. AMLODIPINE [Concomitant]
     Active Substance: AMLODIPINE BESYLATE
     Indication: HYPERTENSION
     Route: 048
  2. HUMIRA [Suspect]
     Active Substance: ADALIMUMAB
     Indication: RHEUMATOID ARTHRITIS
     Route: 058
     Dates: start: 20090818
  3. HUMIRA [Suspect]
     Active Substance: ADALIMUMAB
     Indication: RHEUMATOID ARTHRITIS
     Route: 058
     Dates: end: 20190702
  4. LOSARTAN. [Concomitant]
     Active Substance: LOSARTAN
     Indication: HYPERTENSION
     Route: 048
  5. ACETAMINOPHEN. [Concomitant]
     Active Substance: ACETAMINOPHEN
     Indication: PAIN
     Route: 048
  6. CLONIDINE. [Concomitant]
     Active Substance: CLONIDINE
     Indication: HYPERTENSION
     Route: 048

REACTIONS (18)
  - Headache [Not Recovered/Not Resolved]
  - Ankle fracture [Unknown]
  - Intervertebral disc disorder [Unknown]
  - Musculoskeletal discomfort [Unknown]
  - Chest discomfort [Unknown]
  - Skin wound [Unknown]
  - Blood test abnormal [Unknown]
  - Drug ineffective [Recovering/Resolving]
  - Calculus bladder [Unknown]
  - Rheumatoid arthritis [Recovering/Resolving]
  - Spinal pain [Unknown]
  - Arthralgia [Recovering/Resolving]
  - Pneumonia [Recovering/Resolving]
  - Drowning [Recovering/Resolving]
  - Pruritus [Not Recovered/Not Resolved]
  - Amnesia [Unknown]
  - Dry skin [Unknown]
  - Rheumatoid arthritis [Recovered/Resolved]

NARRATIVE: CASE EVENT DATE: 20090818
